FAERS Safety Report 16356389 (Version 2)
Quarter: 2019Q3

REPORT INFORMATION
  Report Type: Spontaneous
  Country: FR (occurrence: FR)
  Receive Date: 20190527
  Receipt Date: 20190715
  Transmission Date: 20191004
  Serious: Yes (Life-Threatening, Other)
  Sender: FDA-Public Use
  Company Number: FR-CELLTRION INC.-2019FR020545

PATIENT

DRUGS (11)
  1. OXALIPLATINE [Suspect]
     Active Substance: OXALIPLATIN
     Indication: CENTRAL NERVOUS SYSTEM LYMPHOMA
     Dosage: 100 MG/KG
     Route: 065
  2. GEMCITABINE. [Suspect]
     Active Substance: GEMCITABINE
     Indication: CENTRAL NERVOUS SYSTEM LYMPHOMA
     Dosage: RECEIVED FOUR CYCLES (ONE CYCLE WAS OF 28 DAYS)
     Route: 065
  3. GEMCITABINE. [Suspect]
     Active Substance: GEMCITABINE
     Indication: OCULAR LYMPHOMA
     Dosage: UNK
  4. OXALIPLATINE [Suspect]
     Active Substance: OXALIPLATIN
     Indication: OCULAR LYMPHOMA
     Dosage: RECEIVED THREE CYCLES (ONE CYCLE WAS OF 28 DAYS)
     Route: 065
  5. METHOTREXATE. [Suspect]
     Active Substance: METHOTREXATE
     Indication: CENTRAL NERVOUS SYSTEM LYMPHOMA
     Dosage: AS A FIRST-LINE THERAPY
     Route: 065
  6. RITUXIMAB (UNKNOWN) [Suspect]
     Active Substance: RITUXIMAB
     Indication: CENTRAL NERVOUS SYSTEM LYMPHOMA
     Dosage: RECEIVED THREE CYCLES (ONE CYCLE WAS OF 28 DAYS)
     Route: 042
  7. RITUXIMAB (UNKNOWN) [Suspect]
     Active Substance: RITUXIMAB
     Dosage: UNK
  8. OXALIPLATINE [Suspect]
     Active Substance: OXALIPLATIN
     Dosage: UNK
  9. RITUXIMAB (UNKNOWN) [Suspect]
     Active Substance: RITUXIMAB
     Dosage: UNK
  10. RITUXIMAB (UNKNOWN) [Suspect]
     Active Substance: RITUXIMAB
     Indication: OCULAR LYMPHOMA
     Dosage: UNK
  11. METHOTREXATE. [Suspect]
     Active Substance: METHOTREXATE
     Indication: OCULAR LYMPHOMA
     Dosage: UNK

REACTIONS (3)
  - Nephropathy toxic [Unknown]
  - Neutropenia [Unknown]
  - Product use in unapproved indication [Unknown]
